FAERS Safety Report 21211424 (Version 1)
Quarter: 2022Q3

REPORT INFORMATION
  Report Type: Spontaneous
  Country: DK (occurrence: DK)
  Receive Date: 20220815
  Receipt Date: 20220815
  Transmission Date: 20221026
  Serious: Yes (Hospitalization, Other)
  Sender: FDA-Public Use
  Company Number: DK-NOVARTISPH-NVSC2022DK166754

PATIENT
  Age: 49 Year
  Sex: Female

DRUGS (17)
  1. VORICONAZOLE [Suspect]
     Active Substance: VORICONAZOLE
     Indication: Fusarium infection
     Dosage: 200 MG TO 400 MG, BID
     Route: 042
  2. VORICONAZOLE [Suspect]
     Active Substance: VORICONAZOLE
     Dosage: 200 MG TO 1000 MG, BID
     Route: 048
  3. TERBINAFINE [Suspect]
     Active Substance: TERBINAFINE
     Indication: Fusarium infection
     Dosage: 250 MG A DAY TO 500 MG THREE TIMES A DAY, TABLET UNCOATED, ORAL
     Route: 065
  4. POSACONAZOLE [Suspect]
     Active Substance: POSACONAZOLE
     Indication: Antifungal prophylaxis
     Dosage: 300 MG, TABLET UNCOATED
     Route: 048
  5. FLUDARABINE PHOSPHATE [Suspect]
     Active Substance: FLUDARABINE PHOSPHATE
     Indication: Acute myeloid leukaemia
     Dosage: UNK
     Route: 065
  6. AMBISOME [Suspect]
     Active Substance: AMPHOTERICIN B
     Indication: Fusarium infection
     Dosage: 3 MG/KG, QD
     Route: 065
  7. AMBISOME [Suspect]
     Active Substance: AMPHOTERICIN B
     Indication: Systemic mycosis
     Dosage: 2.5 TO 5 MG/KG A DAY
     Route: 062
  8. AMBISOME [Suspect]
     Active Substance: AMPHOTERICIN B
     Dosage: 2.5 TO 5 MG/KG QD
     Route: 042
  9. AMBISOME [Suspect]
     Active Substance: AMPHOTERICIN B
     Dosage: 2.5 MG
     Route: 065
  10. AMBISOME [Suspect]
     Active Substance: AMPHOTERICIN B
     Dosage: 4 MG
     Route: 065
  11. GRANULOCYTE COLONY-STIMULATING FACTOR NOS [Suspect]
     Active Substance: GRANULOCYTE COLONY-STIMULATING FACTOR NOS
     Indication: Acute myeloid leukaemia
     Dosage: UNK
     Route: 065
  12. AMPHOTERICIN B [Suspect]
     Active Substance: AMPHOTERICIN B
     Indication: Fusarium infection
     Dosage: 10 ML, THREE TIMES A WEEK
     Route: 065
  13. CYTARABINE [Suspect]
     Active Substance: CYTARABINE
     Indication: Acute myeloid leukaemia
     Dosage: UNK
     Route: 065
  14. IDARUBICIN [Suspect]
     Active Substance: IDARUBICIN
     Indication: Acute myeloid leukaemia
     Dosage: FLAGIDA
     Route: 065
  15. GEMTUZUMAB OZOGAMICIN [Suspect]
     Active Substance: GEMTUZUMAB OZOGAMICIN
     Indication: Acute myeloid leukaemia
     Dosage: 5 MG AS A SINGLE FLAT DOSE
     Route: 065
  16. METHYLPREDNISOLONE [Concomitant]
     Active Substance: METHYLPREDNISOLONE
     Indication: Fusarium infection
     Dosage: 5 MG
     Route: 065
  17. ISOTONIC GLUCOSE [Concomitant]
     Indication: Fusarium infection
     Dosage: 2 ML
     Route: 065

REACTIONS (9)
  - Fusarium infection [Unknown]
  - Disease progression [Unknown]
  - Peripheral sensory neuropathy [Unknown]
  - Metabolic acidosis [Unknown]
  - Drug ineffective [Not Recovered/Not Resolved]
  - Renal failure [Unknown]
  - Neurotoxicity [Unknown]
  - Neutropenia [Recovered/Resolved]
  - Off label use [Recovered/Resolved]
